FAERS Safety Report 14897781 (Version 4)
Quarter: 2019Q3

REPORT INFORMATION
  Report Type: Spontaneous
  Country: ES (occurrence: PL)
  Receive Date: 20180515
  Receipt Date: 20190716
  Transmission Date: 20191004
  Serious: Yes (Other)
  Sender: FDA-Public Use
  Company Number: ES-MYLANLABS-2018M1031377

PATIENT
  Age: 15 Year
  Sex: Female

DRUGS (2)
  1. ISOTRETINOIN. [Suspect]
     Active Substance: ISOTRETINOIN
     Indication: ACNE
     Dosage: 0.8 MG/KG (MILLIGRAM PER KILOGRAM), QD
     Route: 048
  2. ISOTRETINOIN. [Suspect]
     Active Substance: ISOTRETINOIN
     Indication: ROSACEA
     Dosage: 6000 MG, TOTAL
     Route: 048

REACTIONS (11)
  - Visual impairment [Recovering/Resolving]
  - Off label use [Unknown]
  - Keratitis [Recovering/Resolving]
  - Lacrimation increased [Recovering/Resolving]
  - Photophobia [Recovering/Resolving]
  - Chalazion [Recovered/Resolved]
  - Corneal deposits [Recovered/Resolved]
  - Ocular hyperaemia [Recovering/Resolving]
  - Conjunctivitis [Recovered/Resolved]
  - Product use in unapproved indication [Unknown]
  - Eye pain [Recovering/Resolving]
